FAERS Safety Report 23078082 (Version 5)
Quarter: 2023Q4

REPORT INFORMATION
  Report Type: Report from Study
  Country: NL (occurrence: NL)
  Receive Date: 20231018
  Receipt Date: 20231218
  Transmission Date: 20240109
  Serious: Yes (Death, Hospitalization, Other)
  Sender: FDA-Public Use
  Company Number: NL-ABBVIE-4772822

PATIENT
  Age: 81 Year
  Sex: Female

DRUGS (25)
  1. CARBIDOPA\LEVODOPA [Suspect]
     Active Substance: CARBIDOPA\LEVODOPA
     Indication: Parkinson^s disease
     Dosage: MD: 6.0ML; CD: 1.9ML/H; ED: 1.8ML, REMAINS AT 16 HOURS
     Route: 050
     Dates: start: 20230706, end: 20230724
  2. CARBIDOPA\LEVODOPA [Suspect]
     Active Substance: CARBIDOPA\LEVODOPA
     Dosage: MD: 6.0ML; CD: 1.7ML/H; ED: 2.0ML?REMAINS AT 16 HOURS
     Route: 050
  3. CARBIDOPA\LEVODOPA [Suspect]
     Active Substance: CARBIDOPA\LEVODOPA
     Dosage: MD: 6.0ML; CD: 1.8ML/H; ED: 2.0ML
     Route: 050
     Dates: start: 20230525, end: 20230704
  4. CARBIDOPA\LEVODOPA [Suspect]
     Active Substance: CARBIDOPA\LEVODOPA
     Dosage: MD: 6.0ML; CD: 1.6ML/H; ED: 2.0ML?DURATION TEXT: REMAINS AT 16 HOURS
     Route: 050
  5. CARBIDOPA\LEVODOPA [Suspect]
     Active Substance: CARBIDOPA\LEVODOPA
     Dosage: MD: 6.0ML; CD: 1.8ML/H; ED: 2.0ML?REMAINS AT 16 HOURS
     Route: 050
     Dates: start: 20230503, end: 20230704
  6. CARBIDOPA\LEVODOPA [Suspect]
     Active Substance: CARBIDOPA\LEVODOPA
     Route: 050
     Dates: end: 20231205
  7. CARBIDOPA\LEVODOPA [Suspect]
     Active Substance: CARBIDOPA\LEVODOPA
     Dosage: MD: 6.0ML; CD: 2.0ML/H; ED: 1.8ML?REMAINS AT 16 HOURS
     Route: 050
  8. CARBIDOPA\LEVODOPA [Suspect]
     Active Substance: CARBIDOPA\LEVODOPA
     Dosage: MD: 6.0ML; CD: 2.0ML/H; ED: 1.8ML
     Dates: start: 20230724, end: 20230906
  9. CARBIDOPA\LEVODOPA [Suspect]
     Active Substance: CARBIDOPA\LEVODOPA
     Dosage: MD: 6.0ML; CD: 1.8ML/H; ED: 2.0ML,?DURATION TEXT: REMAINS AT 16 HOURS
     Route: 050
  10. CARBIDOPA\LEVODOPA [Suspect]
     Active Substance: CARBIDOPA\LEVODOPA
     Dosage: MD: 6.0ML; CD: 2.1ML/H; ED: 2.0ML?DURATION TEXT: REMAINS AT 16 HOURS
     Route: 050
     Dates: start: 20230704, end: 20230706
  11. CARBIDOPA\LEVODOPA [Suspect]
     Active Substance: CARBIDOPA\LEVODOPA
     Dosage: MD: 6.0ML; CD: 1.5ML/H; ED: 2.0ML, REMAINS AT 16 HOURS
     Route: 050
  12. CARBIDOPA\LEVODOPA [Suspect]
     Active Substance: CARBIDOPA\LEVODOPA
     Dosage: REMAINS AT 16 HOURS
     Route: 050
  13. CARBIDOPA\LEVODOPA [Suspect]
     Active Substance: CARBIDOPA\LEVODOPA
     Dosage: REMAINS AT 16 HOURS
     Route: 050
     Dates: start: 20181001
  14. CARBIDOPA\LEVODOPA [Suspect]
     Active Substance: CARBIDOPA\LEVODOPA
     Dosage: DURATION TEXT: REMAINS AT 16 HOURS
     Route: 050
  15. CARBIDOPA\LEVODOPA [Suspect]
     Active Substance: CARBIDOPA\LEVODOPA
     Dosage: MD: 6.0ML, CD: 2.0ML/H, ED: 1.8ML
     Route: 050
     Dates: start: 20230906
  16. CARBIDOPA\LEVODOPA [Suspect]
     Active Substance: CARBIDOPA\LEVODOPA
     Dosage: MD: 6.0ML; CD: 1.6ML/H; ED: 2.0ML, REMAINS AT 16 HOURS
     Route: 050
     Dates: start: 20230503, end: 20230525
  17. CARBIDOPA\LEVODOPA [Suspect]
     Active Substance: CARBIDOPA\LEVODOPA
     Dosage: MD: 6.0ML; CD: 2.0ML/H; ED: 1.8ML?REMAINS AT 16 HOURS
     Route: 050
     Dates: start: 20230724
  18. CARBIDOPA\LEVODOPA [Suspect]
     Active Substance: CARBIDOPA\LEVODOPA
     Dosage: MD: 6.0ML; CD: 1.7ML/H; ED: 2.0ML
     Route: 050
  19. CARBIDOPA\LEVODOPA [Suspect]
     Active Substance: CARBIDOPA\LEVODOPA
     Dosage: MD: 6.0ML; CD: 1.9ML/H; ED: 1.8ML?REMAINS AT 16 HOURS
     Route: 050
  20. CARBIDOPA\LEVODOPA [Suspect]
     Active Substance: CARBIDOPA\LEVODOPA
  21. BOTOX [Suspect]
     Active Substance: ONABOTULINUMTOXINA
     Indication: Product used for unknown indication
     Dosage: TIME INTERVAL: AS NECESSARY
     Route: 030
  22. LEXICON [Concomitant]
     Indication: Product used for unknown indication
     Dosage: LAST ADMIN DATE: 2023
     Route: 065
     Dates: start: 202302, end: 2023
  23. LEVODOPA C [Concomitant]
     Indication: Product used for unknown indication
     Route: 065
  24. CARBIDOPA\ENTACAPONE\LEVODOPA [Concomitant]
     Active Substance: CARBIDOPA\ENTACAPONE\LEVODOPA
     Indication: Product used for unknown indication
     Dosage: LAST ADMIN DATE :2023
     Route: 065
     Dates: start: 202302, end: 2023
  25. LIDOCAINE [Concomitant]
     Active Substance: LIDOCAINE
     Indication: Analgesic therapy
     Route: 065

REACTIONS (49)
  - Death [Fatal]
  - Fatigue [Not Recovered/Not Resolved]
  - Neuropathy peripheral [Not Recovered/Not Resolved]
  - Vision blurred [Not Recovered/Not Resolved]
  - Device occlusion [Not Recovered/Not Resolved]
  - On and off phenomenon [Recovered/Resolved]
  - Diarrhoea [Not Recovered/Not Resolved]
  - Dyskinesia [Not Recovered/Not Resolved]
  - Therapeutic product effect delayed [Not Recovered/Not Resolved]
  - Frustration tolerance decreased [Not Recovered/Not Resolved]
  - Decubitus ulcer [Not Recovered/Not Resolved]
  - Device physical property issue [Not Recovered/Not Resolved]
  - Adverse food reaction [Not Recovered/Not Resolved]
  - Restlessness [Not Recovered/Not Resolved]
  - Nocturia [Not Recovered/Not Resolved]
  - Pancreatic disorder [Unknown]
  - Pain [Recovered/Resolved]
  - Weight decreased [Not Recovered/Not Resolved]
  - Memory impairment [Not Recovered/Not Resolved]
  - Dystonia [Not Recovered/Not Resolved]
  - Decreased appetite [Not Recovered/Not Resolved]
  - Hospitalisation [Recovered/Resolved]
  - Disturbance in attention [Not Recovered/Not Resolved]
  - Hypersomnia [Not Recovered/Not Resolved]
  - Muscle spasms [Not Recovered/Not Resolved]
  - Pain in extremity [Not Recovered/Not Resolved]
  - Therapeutic product effect variable [Not Recovered/Not Resolved]
  - Poor quality sleep [Not Recovered/Not Resolved]
  - Intentional device misuse [Not Recovered/Not Resolved]
  - Muscle rigidity [Not Recovered/Not Resolved]
  - Neuralgia [Not Recovered/Not Resolved]
  - Stress [Not Recovered/Not Resolved]
  - Fall [Not Recovered/Not Resolved]
  - Polyneuropathy [Not Recovered/Not Resolved]
  - Contusion [Not Recovered/Not Resolved]
  - Type 2 diabetes mellitus [Not Recovered/Not Resolved]
  - Unevaluable event [Not Recovered/Not Resolved]
  - Asthenia [Not Recovered/Not Resolved]
  - Loss of personal independence in daily activities [Not Recovered/Not Resolved]
  - Asthenia [Not Recovered/Not Resolved]
  - Cachexia [Not Recovered/Not Resolved]
  - Sleep deficit [Not Recovered/Not Resolved]
  - Tension [Not Recovered/Not Resolved]
  - Anxiety [Not Recovered/Not Resolved]
  - Off label use [Not Recovered/Not Resolved]
  - Appetite disorder [Not Recovered/Not Resolved]
  - Muscular weakness [Not Recovered/Not Resolved]
  - Drug ineffective [Not Recovered/Not Resolved]
  - Parkinson^s disease [Not Recovered/Not Resolved]

NARRATIVE: CASE EVENT DATE: 20230101
